FAERS Safety Report 7759399-0 (Version None)
Quarter: 2011Q3

REPORT INFORMATION
  Report Type: 
  Country: None (occurrence: None)
  Receive Date: 20110919
  Receipt Date: 20110909
  Transmission Date: 20111222
  Serious: Yes (Hospitalization, Other)
  Sender: FDA-Public Use
  Company Number: US-ROCHE-781745

PATIENT
  Sex: Male
  Weight: 63.5 kg

DRUGS (3)
  1. IBUPROFEN [Concomitant]
  2. ACCUTANE [Suspect]
     Route: 065
     Dates: start: 19910101, end: 19931201
  3. ASPIRIN [Concomitant]

REACTIONS (5)
  - DEPRESSION [None]
  - ABDOMINAL PAIN [None]
  - INTESTINAL OBSTRUCTION [None]
  - RECTAL HAEMORRHAGE [None]
  - COLITIS ULCERATIVE [None]
